FAERS Safety Report 14501699 (Version 1)
Quarter: 2018Q1

REPORT INFORMATION
  Report Type: Spontaneous
  Country: US (occurrence: US)
  Receive Date: 20180206
  Receipt Date: 20180206
  Transmission Date: 20180509
  Serious: No
  Sender: FDA-Public Use
  Company Number: None

PATIENT
  Age: 64 Year
  Sex: Male
  Weight: 80.1 kg

DRUGS (14)
  1. REPATHA [Suspect]
     Active Substance: EVOLOCUMAB
     Indication: LOW DENSITY LIPOPROTEIN INCREASED
     Dosage: OTHER FREQUENCY:ONCE PER MONTH;?
     Dates: start: 20180129
  2. REPATHA [Suspect]
     Active Substance: EVOLOCUMAB
     Indication: MYOCARDIAL INFARCTION
     Dosage: OTHER FREQUENCY:ONCE PER MONTH;?
     Dates: start: 20180129
  3. VITAMIN C [Concomitant]
     Active Substance: ASCORBIC ACID
  4. ACETYL-L-CARNITINE [Concomitant]
  5. PLAVIX [Concomitant]
     Active Substance: CLOPIDOGREL BISULFATE
  6. VENTOLIN HFA [Concomitant]
     Active Substance: ALBUTEROL SULFATE
  7. VIT K2 [Concomitant]
  8. FISH/KRILL OIL [Concomitant]
  9. VICODIN [Concomitant]
     Active Substance: ACETAMINOPHEN\HYDROCODONE BITARTRATE
  10. SINGULAIR [Concomitant]
     Active Substance: MONTELUKAST SODIUM
  11. TOPROL XL [Concomitant]
     Active Substance: METOPROLOL SUCCINATE
  12. VITAMIN D3 [Concomitant]
     Active Substance: CHOLECALCIFEROL
  13. COQ10 [Concomitant]
     Active Substance: UBIDECARENONE
  14. SOMA [Concomitant]
     Active Substance: CARISOPRODOL

REACTIONS (10)
  - Headache [None]
  - Muscle spasms [None]
  - Asthma [None]
  - Injection site swelling [None]
  - Drug hypersensitivity [None]
  - Injection site pain [None]
  - Injection site erythema [None]
  - Influenza [None]
  - Abdominal pain upper [None]
  - Fatigue [None]

NARRATIVE: CASE EVENT DATE: 20180129
